FAERS Safety Report 21415712 (Version 4)
Quarter: 2023Q1

REPORT INFORMATION
  Report Type: Spontaneous
  Country: GB (occurrence: GB)
  Receive Date: 20221006
  Receipt Date: 20230123
  Transmission Date: 20230418
  Serious: Yes (Death, Other)
  Sender: FDA-Public Use
  Company Number: GB-PURDUE PHARMA-GBR-2017-0048229

PATIENT
  Age: 44 Year
  Sex: Female

DRUGS (12)
  1. ZOPICLONE [Suspect]
     Active Substance: ZOPICLONE
     Indication: Sleep disorder
     Dosage: 14 DOSAGE FORM,QOW
     Route: 048
  2. ZOPICLONE [Suspect]
     Active Substance: ZOPICLONE
     Dosage: UNK (UNKNOWN)
     Route: 065
  3. PREGABALIN [Suspect]
     Active Substance: PREGABALIN
     Indication: Product used for unknown indication
     Dosage: UNK, (UNKNOWN)
     Route: 065
  4. PREGABALIN [Suspect]
     Active Substance: PREGABALIN
     Dosage: 3 DOSAGE FORM, 1 TOTAL
     Route: 065
     Dates: start: 20161015, end: 20161015
  5. ACETAMINOPHEN [Suspect]
     Active Substance: ACETAMINOPHEN
     Indication: Pain
     Dosage: 28 DOSAGE FORM, QD
     Route: 048
  6. ACETAMINOPHEN [Suspect]
     Active Substance: ACETAMINOPHEN
     Dosage: UNK
     Route: 048
     Dates: start: 20161014, end: 20161014
  7. COCODAMOL [Suspect]
     Active Substance: ACETAMINOPHEN\CODEINE PHOSPHATE
     Indication: Pain
     Dosage: 28 DOSAGE FORM, QD, 112 TABLET, FOR TWO WEEKS
     Route: 048
  8. COCODAMOL [Suspect]
     Active Substance: ACETAMINOPHEN\CODEINE PHOSPHATE
     Indication: Analgesic therapy
     Dosage: UNK, (UNKNOWN)
     Route: 048
     Dates: start: 20161014, end: 20161014
  9. MORPHINE SULFATE [Suspect]
     Active Substance: MORPHINE SULFATE
     Indication: Product used for unknown indication
     Dosage: UNK
     Route: 065
  10. MORPHINE SULFATE [Suspect]
     Active Substance: MORPHINE SULFATE
     Dosage: 6-7 TABLETS TOTAL
     Route: 065
     Dates: start: 20161014, end: 20161014
  11. MORPHINE [Suspect]
     Active Substance: MORPHINE
     Indication: Product used for unknown indication
     Dosage: UNK, (UNKNOWN)
     Route: 065
  12. MORPHINE [Suspect]
     Active Substance: MORPHINE
     Dosage: TOTAL (UNK, (6 OR 7 TABLETS))
     Route: 065
     Dates: start: 20161014, end: 20161014

REACTIONS (11)
  - Toxicity to various agents [Fatal]
  - Pneumonia [Fatal]
  - Dysarthria [Fatal]
  - Vision blurred [Fatal]
  - Gait disturbance [Fatal]
  - Eye pain [Fatal]
  - Drug diversion [Fatal]
  - Drug abuse [Fatal]
  - Prescription drug used without a prescription [Fatal]
  - Accidental overdose [Fatal]
  - Intentional product misuse [Fatal]

NARRATIVE: CASE EVENT DATE: 20161014
